FAERS Safety Report 9493883 (Version 2)
Quarter: 2013Q3

REPORT INFORMATION
  Report Type: Spontaneous
  Country: AU (occurrence: AU)
  Receive Date: 20130903
  Receipt Date: 20130917
  Transmission Date: 20140515
  Serious: Yes (Other)
  Sender: FDA-Public Use
  Company Number: AU-PFIZER INC-2013252446

PATIENT
  Sex: Female
  Weight: 78 kg

DRUGS (1)
  1. EFEXOR XR [Suspect]
     Dosage: 150 MG, UNK
     Dates: start: 200105

REACTIONS (17)
  - Type 2 diabetes mellitus [Unknown]
  - Rheumatic disorder [Unknown]
  - Fibromyalgia [Unknown]
  - Pain [Unknown]
  - Myalgia [Unknown]
  - Fatigue [Unknown]
  - Dyspepsia [Unknown]
  - Weight increased [Unknown]
  - Blood cholesterol increased [Unknown]
  - Constipation [Unknown]
  - Periodontal disease [Unknown]
  - Dry mouth [Unknown]
  - Increased appetite [Unknown]
  - Paraesthesia [Unknown]
  - Vision blurred [Unknown]
  - Gastrooesophageal reflux disease [Unknown]
  - Weight decreased [Unknown]
